FAERS Safety Report 14988084 (Version 1)
Quarter: 2018Q2

REPORT INFORMATION
  Report Type: Spontaneous
  Country: US (occurrence: US)
  Receive Date: 20180519
  Receipt Date: 20180519
  Transmission Date: 20180711
  Serious: Yes (Life-Threatening, Disabling)
  Sender: FDA-Public Use
  Company Number: None

PATIENT
  Age: 43 Year
  Sex: Female
  Weight: 76.5 kg

DRUGS (4)
  1. IBUPROFEN. [Concomitant]
     Active Substance: IBUPROFEN
  2. KLONOPIN [Suspect]
     Active Substance: CLONAZEPAM
     Indication: BIPOLAR DISORDER
     Dosage: ?          OTHER FREQUENCY:VARIED;?
     Route: 048
     Dates: start: 20120201, end: 20170206
  3. XANAX [Suspect]
     Active Substance: ALPRAZOLAM
     Indication: BIPOLAR DISORDER
     Dosage: ?          OTHER FREQUENCY:VARIED;?
     Route: 048
     Dates: start: 20120201, end: 20170206
  4. VIORELE [Concomitant]
     Active Substance: DESOGESTREL\ETHINYL ESTRADIOL

REACTIONS (12)
  - Withdrawal syndrome [None]
  - Multiple organ dysfunction syndrome [None]
  - Drug tolerance [None]
  - Mental disorder [None]
  - Neuralgia [None]
  - Suicidal ideation [None]
  - Psychotic disorder [None]
  - Incorrect drug administration duration [None]
  - Malaise [None]
  - Anger [None]
  - Violence-related symptom [None]
  - Aggression [None]

NARRATIVE: CASE EVENT DATE: 20170206
